FAERS Safety Report 24744330 (Version 1)
Quarter: 2024Q4

REPORT INFORMATION
  Report Type: Spontaneous
  Country: US (occurrence: None)
  Receive Date: 20241216
  Receipt Date: 20241216
  Transmission Date: 20250115
  Serious: Yes (Hospitalization)
  Sender: Public
  Company Number: None

PATIENT
  Age: 58 Year
  Sex: Male
  Weight: 81.85 kg

DRUGS (15)
  1. TACROLIMUS [Suspect]
     Active Substance: TACROLIMUS
     Indication: Liver transplant
     Dosage: FREQUENCY : TWICE A DAY;?
     Route: 048
     Dates: start: 20230403
  2. famotidine 20 mg tablet [Concomitant]
     Dates: start: 20230918
  3. pregabalin 150 mg capsule [Concomitant]
     Dates: start: 20230501
  4. methadone 5 mg tablet [Concomitant]
     Dates: start: 20240726, end: 20241009
  5. methadone 10 mg tablet [Concomitant]
     Dates: start: 20241025
  6. Fentanyl 50 mcg/hr patch [Concomitant]
     Dates: start: 20230628, end: 20230726
  7. Fentanyl 75 mcg/hr patch [Concomitant]
     Dates: start: 20240207, end: 20240621
  8. Fentanyl 100 mcg/hr patch [Concomitant]
     Dates: start: 20240624
  9. OXYCODONE [Concomitant]
     Active Substance: OXYCODONE
     Dates: start: 20230520, end: 20240623
  10. oxycodone 20 mg tablet [Concomitant]
     Dates: start: 20240624
  11. Anoro Ellipta 62.5-25 Oral inhalers [Concomitant]
     Dates: start: 20231116
  12. ropinirole 1 mg tablet [Concomitant]
     Dates: start: 20230403
  13. TAMSULOSIN HYDROCHLORIDE [Concomitant]
     Active Substance: TAMSULOSIN HYDROCHLORIDE
     Dates: start: 20230403
  14. mycophenolate 250 mg capsule [Concomitant]
     Dates: start: 20230403, end: 20240520
  15. Novolin N U-100 Flexpen [Concomitant]
     Dates: start: 20230403

REACTIONS (2)
  - Cancer pain [None]
  - Oesophageal carcinoma [None]

NARRATIVE: CASE EVENT DATE: 20241125
